FAERS Safety Report 16822267 (Version 2)
Quarter: 2019Q4

REPORT INFORMATION
  Report Type: Spontaneous
  Country: US (occurrence: US)
  Receive Date: 20190918
  Receipt Date: 20191003
  Transmission Date: 20200122
  Serious: No
  Sender: FDA-Public Use
  Company Number: US-PFIZER INC-2019399628

PATIENT
  Age: 58 Year
  Sex: Female
  Weight: 77.98 kg

DRUGS (7)
  1. IMITREX [Concomitant]
     Active Substance: SUMATRIPTAN SUCCINATE
     Dosage: UNK, AS NEEDED
  2. NEURONTIN [Concomitant]
     Active Substance: GABAPENTIN
     Dosage: UNK
  3. FOLATE [Concomitant]
     Active Substance: FOLATE SODIUM
     Dosage: UNK
  4. GABAPENTIN. [Suspect]
     Active Substance: GABAPENTIN
     Indication: PAIN
     Dosage: UNK
     Route: 048
     Dates: start: 20121011
  5. METHOTREXATE. [Concomitant]
     Active Substance: METHOTREXATE
     Dosage: UNK (START DATE: 20/FRIDAY)
  6. HYDROCODONE [Concomitant]
     Active Substance: HYDROCODONE
     Dosage: UNK
  7. HUMIRA [Concomitant]
     Active Substance: ADALIMUMAB
     Dosage: UNK (PEN 40 Q UNIT SY)

REACTIONS (5)
  - Withdrawal syndrome [Unknown]
  - Vomiting [Unknown]
  - Product use in unapproved indication [Unknown]
  - Off label use [Unknown]
  - Nausea [Unknown]

NARRATIVE: CASE EVENT DATE: 20121011
